FAERS Safety Report 21957878 (Version 20)
Quarter: 2025Q3

REPORT INFORMATION
  Report Type: Report from Study
  Country: US (occurrence: US)
  Receive Date: 20230206
  Receipt Date: 20250801
  Transmission Date: 20251021
  Serious: Yes (Other)
  Sender: TAKEDA
  Company Number: US-TAKEDA-2021TUS059588

PATIENT
  Age: 66 Year
  Sex: Female
  Weight: 118 kg

DRUGS (39)
  1. HUMAN IMMUNOGLOBULIN G [Suspect]
     Active Substance: HUMAN IMMUNOGLOBULIN G
     Indication: Immune system disorder
     Dosage: 16 GRAM, 1/WEEK
  2. HUMAN IMMUNOGLOBULIN G [Suspect]
     Active Substance: HUMAN IMMUNOGLOBULIN G
     Indication: Hypergammaglobulinaemia
     Dosage: 16 GRAM, 1/WEEK
  3. HUMAN IMMUNOGLOBULIN G [Suspect]
     Active Substance: HUMAN IMMUNOGLOBULIN G
     Dosage: 16 GRAM, 1/WEEK
  4. HUMAN IMMUNOGLOBULIN G [Suspect]
     Active Substance: HUMAN IMMUNOGLOBULIN G
     Dosage: 16 GRAM, Q2WEEKS
  5. HUMAN IMMUNOGLOBULIN G [Suspect]
     Active Substance: HUMAN IMMUNOGLOBULIN G
  6. HUMAN IMMUNOGLOBULIN G [Suspect]
     Active Substance: HUMAN IMMUNOGLOBULIN G
     Dosage: 17 GRAM, 1/WEEK
  7. PIMECROLIMUS [Concomitant]
     Active Substance: PIMECROLIMUS
  8. ALBUTEROL SULFATE [Concomitant]
     Active Substance: ALBUTEROL SULFATE
  9. MAGNESIUM [Concomitant]
     Active Substance: MAGNESIUM
  10. CLOBETASOL PROPIONATE [Concomitant]
     Active Substance: CLOBETASOL PROPIONATE
  11. BETAMETHASONE DIPROPIONATE [Concomitant]
     Active Substance: BETAMETHASONE DIPROPIONATE
  12. BIOTIN [Concomitant]
     Active Substance: BIOTIN
  13. BETAMETHASONE\CLOTRIMAZOLE [Concomitant]
     Active Substance: BETAMETHASONE\CLOTRIMAZOLE
  14. BREO ELLIPTA [Concomitant]
     Active Substance: FLUTICASONE FUROATE\VILANTEROL TRIFENATATE
  15. ZYRTEC [Concomitant]
     Active Substance: CETIRIZINE HYDROCHLORIDE
  16. Coq [Concomitant]
  17. ZINC GLUCONATE [Concomitant]
     Active Substance: ZINC GLUCONATE
  18. METRONIDAZOLE [Concomitant]
     Active Substance: METRONIDAZOLE
  19. NEURONTIN [Concomitant]
     Active Substance: GABAPENTIN
  20. ZANAFLEX [Concomitant]
     Active Substance: TIZANIDINE HYDROCHLORIDE
  21. VITAMIN C [Concomitant]
     Active Substance: ASCORBIC ACID
  22. IPRATROPIUM BROMIDE [Concomitant]
     Active Substance: IPRATROPIUM BROMIDE
  23. LIPITOR [Concomitant]
     Active Substance: ATORVASTATIN CALCIUM
  24. PANTOPRAZOLE SODIUM [Concomitant]
     Active Substance: PANTOPRAZOLE SODIUM
  25. TEMAZEPAM [Concomitant]
     Active Substance: TEMAZEPAM
  26. HERBALS\TURMERIC [Concomitant]
     Active Substance: HERBALS\TURMERIC
  27. PREMARIN [Concomitant]
     Active Substance: ESTROGENS, CONJUGATED
  28. ACETAMINOPHEN AND CODEINE [Concomitant]
     Active Substance: ACETAMINOPHEN\CODEINE PHOSPHATE
  29. EPINEPHRINE [Concomitant]
     Active Substance: EPINEPHRINE
  30. DIPHENHYDRAMINE [Concomitant]
     Active Substance: DIPHENHYDRAMINE
  31. Lmx [Concomitant]
  32. TRELEGY ELLIPTA [Concomitant]
     Active Substance: FLUTICASONE FUROATE\UMECLIDINIUM BROMIDE\VILANTEROL TRIFENATATE
  33. Nac [Concomitant]
  34. MELOXICAM [Concomitant]
     Active Substance: MELOXICAM
  35. LEXAPRO [Concomitant]
     Active Substance: ESCITALOPRAM OXALATE
  36. XYZAL [Concomitant]
     Active Substance: LEVOCETIRIZINE DIHYDROCHLORIDE
  37. DIPHENHYDRAMINE HYDROCHLORIDE [Concomitant]
     Active Substance: DIPHENHYDRAMINE HYDROCHLORIDE
  38. ACETAMINOPHEN [Concomitant]
     Active Substance: ACETAMINOPHEN
  39. IPRATROPIUM [Concomitant]
     Active Substance: IPRATROPIUM

REACTIONS (20)
  - Autoimmune blistering disease [Not Recovered/Not Resolved]
  - Type 2 diabetes mellitus [Unknown]
  - Dysuria [Recovering/Resolving]
  - COVID-19 [Unknown]
  - Skin reaction [Unknown]
  - Nasopharyngitis [Unknown]
  - Respiratory tract infection [Unknown]
  - Procedural pain [Unknown]
  - Streptococcal infection [Unknown]
  - Post procedural swelling [Unknown]
  - Urinary tract infection [Unknown]
  - Product dose omission in error [Unknown]
  - Fungal infection [Unknown]
  - Product dose omission issue [Unknown]
  - Inappropriate schedule of product administration [Unknown]
  - Influenza [Unknown]
  - Rash pruritic [Unknown]
  - Muscle spasms [Recovering/Resolving]
  - Infusion site erythema [Unknown]
  - Pain [Recovering/Resolving]

NARRATIVE: CASE EVENT DATE: 20230309
